FAERS Safety Report 15331175 (Version 5)
Quarter: 2020Q3

REPORT INFORMATION
  Report Type: Report from Study
  Country: DE (occurrence: DE)
  Receive Date: 20180829
  Receipt Date: 20200731
  Transmission Date: 20201102
  Serious: Yes (Death, Hospitalization)
  Sender: FDA-Public Use
  Company Number: DE-EISAI MEDICAL RESEARCH-EC-2018-044524

PATIENT
  Age: 63 Year
  Sex: Female
  Weight: 115 kg

DRUGS (1)
  1. HALAVEN [Suspect]
     Active Substance: ERIBULIN MESYLATE
     Indication: BREAST CANCER METASTATIC
     Route: 041
     Dates: start: 20180808, end: 20180815

REACTIONS (3)
  - Febrile infection [Fatal]
  - Stomatitis [Fatal]
  - Pyrexia [Fatal]

NARRATIVE: CASE EVENT DATE: 20180818
